FAERS Safety Report 11694137 (Version 2)
Quarter: 2015Q4

REPORT INFORMATION
  Report Type: Spontaneous
  Country: US (occurrence: US)
  Receive Date: 20151103
  Receipt Date: 20151207
  Transmission Date: 20160304
  Serious: Yes (Hospitalization, Other)
  Sender: FDA-Public Use
  Company Number: US-SMITH AND NEPHEW, INC-2015SMT00452

PATIENT
  Age: 59 Year
  Sex: Male
  Weight: 131.52 kg

DRUGS (9)
  1. INVOKANA [Concomitant]
     Active Substance: CANAGLIFLOZIN
  2. NORVASC [Concomitant]
     Active Substance: AMLODIPINE BESYLATE
  3. METFORMIN [Concomitant]
     Active Substance: METFORMIN HYDROCHLORIDE
  4. GABAPENTIN. [Concomitant]
     Active Substance: GABAPENTIN
  5. LASIX [Concomitant]
     Active Substance: FUROSEMIDE
  6. LEVEMIR [Concomitant]
     Active Substance: INSULIN DETEMIR
  7. LOSARTAN. [Concomitant]
     Active Substance: LOSARTAN
  8. CIPRO [Concomitant]
     Active Substance: CIPROFLOXACIN HYDROCHLORIDE
  9. REGRANEX [Suspect]
     Active Substance: BECAPLERMIN
     Indication: DIABETIC FOOT
     Dosage: UNK UNK, 1X/DAY
     Route: 061
     Dates: start: 2015, end: 2015

REACTIONS (10)
  - Osteomyelitis chronic [Unknown]
  - Gram stain positive [Unknown]
  - Obesity [Unknown]
  - Drug ineffective [Recovered/Resolved with Sequelae]
  - Foot amputation [Recovered/Resolved with Sequelae]
  - Wound complication [Recovered/Resolved with Sequelae]
  - Abscess soft tissue [Unknown]
  - Osteomyelitis acute [Unknown]
  - Hypertension [Unknown]
  - Gangrene [Unknown]

NARRATIVE: CASE EVENT DATE: 2015
